FAERS Safety Report 18167905 (Version 1)
Quarter: 2020Q3

REPORT INFORMATION
  Report Type: Spontaneous
  Country: US (occurrence: US)
  Receive Date: 20200818
  Receipt Date: 20200818
  Transmission Date: 20201103
  Serious: No
  Sender: FDA-Public Use
  Company Number: US-OTSUKA-2020_015194

PATIENT
  Sex: Female

DRUGS (1)
  1. ABILIFY MAINTENA [Suspect]
     Active Substance: ARIPIPRAZOLE
     Indication: PSYCHOTIC DISORDER
     Dosage: 1 DF, QM (ONE INJECTION OF 300 OR 400)
     Route: 065

REACTIONS (5)
  - Product use in unapproved indication [Unknown]
  - Musculoskeletal discomfort [Unknown]
  - Micturition urgency [Recovering/Resolving]
  - Hypometabolism [Unknown]
  - Weight increased [Not Recovered/Not Resolved]
